FAERS Safety Report 11705377 (Version 1)
Quarter: 2015Q4

REPORT INFORMATION
  Report Type: Spontaneous
  Country: None (occurrence: GB)
  Receive Date: 20151106
  Receipt Date: 20151106
  Transmission Date: 20160304
  Serious: Yes (Hospitalization, Other)
  Sender: FDA-Public Use
  Company Number: GB-MEDAC PHARMA, INC.-1043864

PATIENT
  Age: 7 Year
  Sex: Female
  Weight: 24.2 kg

DRUGS (7)
  1. MYCOPHENOLATE MOFETIL. [Suspect]
     Active Substance: MYCOPHENOLATE MOFETIL
     Route: 048
     Dates: start: 20141219, end: 20150423
  2. AMOXICILLIN. [Concomitant]
     Active Substance: AMOXICILLIN
  3. HUMIRA [Suspect]
     Active Substance: ADALIMUMAB
     Route: 058
     Dates: start: 20150424, end: 20151014
  4. MAXIDEX [Concomitant]
     Active Substance: DEXAMETHASONE
  5. METHOTREXATE [Suspect]
     Active Substance: METHOTREXATE
     Indication: UVEITIS
     Route: 058
     Dates: start: 20140627, end: 20150801
  6. TRUSOPT [Concomitant]
     Active Substance: DORZOLAMIDE HYDROCHLORIDE
  7. MYCOPHENOLATE MOFETIL. [Suspect]
     Active Substance: MYCOPHENOLATE MOFETIL
     Route: 048
     Dates: start: 20150424, end: 20151014

REACTIONS (2)
  - Alanine aminotransferase increased [Recovered/Resolved]
  - Acute lymphocytic leukaemia [Not Recovered/Not Resolved]

NARRATIVE: CASE EVENT DATE: 201504
